FAERS Safety Report 22666347 (Version 5)
Quarter: 2024Q4

REPORT INFORMATION
  Report Type: Spontaneous
  Country: JP (occurrence: JP)
  Receive Date: 20230703
  Receipt Date: 20241101
  Transmission Date: 20250115
  Serious: Yes (Hospitalization, Other)
  Sender: ALEXION PHARMACEUTICALS
  Company Number: 2023A150584

PATIENT
  Age: 75 Year
  Weight: 42 kg

DRUGS (146)
  1. TAGRISSO [Suspect]
     Active Substance: OSIMERTINIB
     Dosage: 80 MILLIGRAM, QD
  2. TAGRISSO [Suspect]
     Active Substance: OSIMERTINIB
     Dosage: 80 MILLIGRAM, QD
  3. TAGRISSO [Suspect]
     Active Substance: OSIMERTINIB
     Dosage: 80 MILLIGRAM, QD
  4. TAGRISSO [Suspect]
     Active Substance: OSIMERTINIB
     Dosage: 80 MILLIGRAM, QD
  5. WARFARIN [Concomitant]
     Active Substance: WARFARIN
     Indication: Cardiac valve disease
     Dosage: DOSE UNKNOWN
     Route: 065
  6. WARFARIN [Concomitant]
     Active Substance: WARFARIN
     Dosage: DOSE UNKNOWN
  7. WARFARIN [Concomitant]
     Active Substance: WARFARIN
     Dosage: AFTER DINNER
  8. WARFARIN [Concomitant]
     Active Substance: WARFARIN
     Dosage: AFTER DINNER
  9. DAPAGLIFLOZIN [Concomitant]
     Active Substance: DAPAGLIFLOZIN
     Dosage: AFTER BREAKFAST
  10. DAPAGLIFLOZIN [Concomitant]
     Active Substance: DAPAGLIFLOZIN
     Dosage: AFTER BREAKFAST
  11. DAPAGLIFLOZIN [Concomitant]
     Active Substance: DAPAGLIFLOZIN
     Dosage: AFTER BREAKFAST
  12. DAPAGLIFLOZIN [Concomitant]
     Active Substance: DAPAGLIFLOZIN
     Dosage: AFTER BREAKFAST
  13. TORSEMIDE [Concomitant]
     Active Substance: TORSEMIDE
     Dosage: AFTER BREAKFAST
  14. TORSEMIDE [Concomitant]
     Active Substance: TORSEMIDE
     Dosage: AFTER BREAKFAST
  15. TORSEMIDE [Concomitant]
     Active Substance: TORSEMIDE
     Dosage: AFTER BREAKFAST
  16. TORSEMIDE [Concomitant]
     Active Substance: TORSEMIDE
     Dosage: AFTER BREAKFAST
  17. TORSEMIDE [Concomitant]
     Active Substance: TORSEMIDE
     Dosage: AFTER BREAKFAST
  18. TORSEMIDE [Concomitant]
     Active Substance: TORSEMIDE
     Dosage: AFTER BREAKFAST
  19. TORSEMIDE [Concomitant]
     Active Substance: TORSEMIDE
     Dosage: AFTER BREAKFAST
  20. TORSEMIDE [Concomitant]
     Active Substance: TORSEMIDE
     Dosage: AFTER BREAKFAST
  21. TORSEMIDE [Concomitant]
     Active Substance: TORSEMIDE
     Dosage: AFTER BREAKFAST
  22. TORSEMIDE [Concomitant]
     Active Substance: TORSEMIDE
     Dosage: AFTER BREAKFAST
  23. TORSEMIDE [Concomitant]
     Active Substance: TORSEMIDE
     Dosage: AFTER BREAKFAST
  24. TORSEMIDE [Concomitant]
     Active Substance: TORSEMIDE
     Dosage: AFTER BREAKFAST
  25. ATORVASTATIN [Concomitant]
     Active Substance: ATORVASTATIN
     Dosage: AFTER DINNER
  26. ATORVASTATIN [Concomitant]
     Active Substance: ATORVASTATIN
     Dosage: AFTER DINNER
  27. ATORVASTATIN [Concomitant]
     Active Substance: ATORVASTATIN
     Dosage: AFTER DINNER
  28. ATORVASTATIN [Concomitant]
     Active Substance: ATORVASTATIN
     Dosage: AFTER DINNER
  29. ATORVASTATIN [Concomitant]
     Active Substance: ATORVASTATIN
     Dosage: AFTER DINNER
  30. ATORVASTATIN [Concomitant]
     Active Substance: ATORVASTATIN
     Dosage: AFTER DINNER
  31. ATORVASTATIN [Concomitant]
     Active Substance: ATORVASTATIN
     Dosage: AFTER DINNER
  32. ATORVASTATIN [Concomitant]
     Active Substance: ATORVASTATIN
     Dosage: AFTER DINNER
  33. ATORVASTATIN [Concomitant]
     Active Substance: ATORVASTATIN
     Dosage: AFTER DINNER
  34. ATORVASTATIN [Concomitant]
     Active Substance: ATORVASTATIN
     Dosage: AFTER DINNER
  35. ATORVASTATIN [Concomitant]
     Active Substance: ATORVASTATIN
     Dosage: AFTER DINNER
  36. ATORVASTATIN [Concomitant]
     Active Substance: ATORVASTATIN
     Dosage: AFTER DINNER
  37. DILTIAZEM HYDROCHLORIDE [Concomitant]
     Active Substance: DILTIAZEM HYDROCHLORIDE
     Indication: Hypertension
     Dosage: AFTER EACH MEAL
  38. DILTIAZEM HYDROCHLORIDE [Concomitant]
     Active Substance: DILTIAZEM HYDROCHLORIDE
     Dosage: AFTER EACH MEAL
  39. DILTIAZEM HYDROCHLORIDE [Concomitant]
     Active Substance: DILTIAZEM HYDROCHLORIDE
     Dosage: AFTER EACH MEAL
  40. DILTIAZEM HYDROCHLORIDE [Concomitant]
     Active Substance: DILTIAZEM HYDROCHLORIDE
     Dosage: AFTER EACH MEAL
  41. DILTIAZEM HYDROCHLORIDE [Concomitant]
     Active Substance: DILTIAZEM HYDROCHLORIDE
     Dosage: AFTER EACH MEAL
  42. DILTIAZEM HYDROCHLORIDE [Concomitant]
     Active Substance: DILTIAZEM HYDROCHLORIDE
     Dosage: AFTER EACH MEAL
  43. DILTIAZEM HYDROCHLORIDE [Concomitant]
     Active Substance: DILTIAZEM HYDROCHLORIDE
     Dosage: AFTER EACH MEAL
  44. DILTIAZEM HYDROCHLORIDE [Concomitant]
     Active Substance: DILTIAZEM HYDROCHLORIDE
     Dosage: AFTER EACH MEAL
  45. DILTIAZEM HYDROCHLORIDE [Concomitant]
     Active Substance: DILTIAZEM HYDROCHLORIDE
     Dosage: AFTER EACH MEAL
  46. DILTIAZEM HYDROCHLORIDE [Concomitant]
     Active Substance: DILTIAZEM HYDROCHLORIDE
     Dosage: AFTER EACH MEAL
  47. DILTIAZEM HYDROCHLORIDE [Concomitant]
     Active Substance: DILTIAZEM HYDROCHLORIDE
     Dosage: AFTER EACH MEAL
  48. DILTIAZEM HYDROCHLORIDE [Concomitant]
     Active Substance: DILTIAZEM HYDROCHLORIDE
     Dosage: AFTER EACH MEAL
  49. ISOSORBIDE DINITRATE [Concomitant]
     Active Substance: ISOSORBIDE DINITRATE
     Indication: Cardiac failure
     Dosage: AFTER EACH MEAL
  50. ISOSORBIDE DINITRATE [Concomitant]
     Active Substance: ISOSORBIDE DINITRATE
     Dosage: AFTER EACH MEAL
  51. ISOSORBIDE DINITRATE [Concomitant]
     Active Substance: ISOSORBIDE DINITRATE
     Dosage: AFTER EACH MEAL
  52. ISOSORBIDE DINITRATE [Concomitant]
     Active Substance: ISOSORBIDE DINITRATE
     Dosage: AFTER EACH MEAL
  53. ISOSORBIDE DINITRATE [Concomitant]
     Active Substance: ISOSORBIDE DINITRATE
     Dosage: AFTER EACH MEAL
  54. ISOSORBIDE DINITRATE [Concomitant]
     Active Substance: ISOSORBIDE DINITRATE
     Dosage: AFTER EACH MEAL
  55. ISOSORBIDE DINITRATE [Concomitant]
     Active Substance: ISOSORBIDE DINITRATE
     Dosage: AFTER EACH MEAL
  56. ISOSORBIDE DINITRATE [Concomitant]
     Active Substance: ISOSORBIDE DINITRATE
     Dosage: AFTER EACH MEAL
  57. ISOSORBIDE DINITRATE [Concomitant]
     Active Substance: ISOSORBIDE DINITRATE
     Dosage: AFTER EACH MEAL
  58. ISOSORBIDE DINITRATE [Concomitant]
     Active Substance: ISOSORBIDE DINITRATE
     Dosage: AFTER EACH MEAL
  59. ISOSORBIDE DINITRATE [Concomitant]
     Active Substance: ISOSORBIDE DINITRATE
     Dosage: AFTER EACH MEAL
  60. ISOSORBIDE DINITRATE [Concomitant]
     Active Substance: ISOSORBIDE DINITRATE
     Dosage: AFTER EACH MEAL
  61. NICORANDIL [Concomitant]
     Active Substance: NICORANDIL
     Indication: Cardiac failure
     Dosage: AFTER EACH MEAL
  62. NICORANDIL [Concomitant]
     Active Substance: NICORANDIL
     Dosage: AFTER EACH MEAL
  63. NICORANDIL [Concomitant]
     Active Substance: NICORANDIL
     Dosage: AFTER EACH MEAL
  64. NICORANDIL [Concomitant]
     Active Substance: NICORANDIL
     Dosage: AFTER EACH MEAL
  65. NICORANDIL [Concomitant]
     Active Substance: NICORANDIL
     Dosage: AFTER EACH MEAL
  66. NICORANDIL [Concomitant]
     Active Substance: NICORANDIL
     Dosage: AFTER EACH MEAL
  67. NICORANDIL [Concomitant]
     Active Substance: NICORANDIL
     Dosage: AFTER EACH MEAL
  68. NICORANDIL [Concomitant]
     Active Substance: NICORANDIL
     Dosage: AFTER EACH MEAL
  69. NICORANDIL [Concomitant]
     Active Substance: NICORANDIL
     Dosage: AFTER EACH MEAL
  70. NICORANDIL [Concomitant]
     Active Substance: NICORANDIL
     Dosage: AFTER EACH MEAL
  71. NICORANDIL [Concomitant]
     Active Substance: NICORANDIL
     Dosage: AFTER EACH MEAL
  72. NICORANDIL [Concomitant]
     Active Substance: NICORANDIL
     Dosage: AFTER EACH MEAL
  73. BELSOMRA [Concomitant]
     Active Substance: SUVOREXANT
     Dosage: BEFORE BEDTIME
  74. BELSOMRA [Concomitant]
     Active Substance: SUVOREXANT
     Dosage: BEFORE BEDTIME
  75. BELSOMRA [Concomitant]
     Active Substance: SUVOREXANT
     Dosage: BEFORE BEDTIME
  76. BELSOMRA [Concomitant]
     Active Substance: SUVOREXANT
     Dosage: BEFORE BEDTIME
  77. BELSOMRA [Concomitant]
     Active Substance: SUVOREXANT
     Dosage: BEFORE BEDTIME
  78. BELSOMRA [Concomitant]
     Active Substance: SUVOREXANT
     Dosage: BEFORE BEDTIME
  79. BELSOMRA [Concomitant]
     Active Substance: SUVOREXANT
     Dosage: BEFORE BEDTIME
  80. BELSOMRA [Concomitant]
     Active Substance: SUVOREXANT
     Dosage: BEFORE BEDTIME
  81. BELSOMRA [Concomitant]
     Active Substance: SUVOREXANT
     Dosage: BEFORE BEDTIME
  82. BELSOMRA [Concomitant]
     Active Substance: SUVOREXANT
     Dosage: BEFORE BEDTIME
  83. BELSOMRA [Concomitant]
     Active Substance: SUVOREXANT
     Dosage: BEFORE BEDTIME
  84. BELSOMRA [Concomitant]
     Active Substance: SUVOREXANT
     Dosage: BEFORE BEDTIME
  85. NEUROTROPIN [Concomitant]
     Active Substance: NEUROTROPIN
     Dosage: AFTER BREAKFAST AND DINNER
  86. NEUROTROPIN [Concomitant]
     Active Substance: NEUROTROPIN
     Dosage: AFTER BREAKFAST AND DINNER
  87. NEUROTROPIN [Concomitant]
     Active Substance: NEUROTROPIN
     Dosage: AFTER BREAKFAST AND DINNER
  88. NEUROTROPIN [Concomitant]
     Active Substance: NEUROTROPIN
     Dosage: AFTER BREAKFAST AND DINNER
  89. NEUROTROPIN [Concomitant]
     Active Substance: NEUROTROPIN
     Dosage: AFTER BREAKFAST AND DINNER
  90. NEUROTROPIN [Concomitant]
     Active Substance: NEUROTROPIN
     Dosage: AFTER BREAKFAST AND DINNER
  91. NEUROTROPIN [Concomitant]
     Active Substance: NEUROTROPIN
     Dosage: AFTER BREAKFAST AND DINNER
  92. NEUROTROPIN [Concomitant]
     Active Substance: NEUROTROPIN
     Dosage: AFTER BREAKFAST AND DINNER
  93. NEUROTROPIN [Concomitant]
     Active Substance: NEUROTROPIN
     Dosage: AFTER BREAKFAST AND DINNER
  94. NEUROTROPIN [Concomitant]
     Active Substance: NEUROTROPIN
     Dosage: AFTER BREAKFAST AND DINNER
  95. NEUROTROPIN [Concomitant]
     Active Substance: NEUROTROPIN
     Dosage: AFTER BREAKFAST AND DINNER
  96. NEUROTROPIN [Concomitant]
     Active Substance: NEUROTROPIN
     Dosage: AFTER BREAKFAST AND DINNER
  97. ELDECALCITOL [Concomitant]
     Active Substance: ELDECALCITOL
     Dosage: AFTER BREAKFAST
  98. ELDECALCITOL [Concomitant]
     Active Substance: ELDECALCITOL
     Dosage: AFTER BREAKFAST
  99. ELDECALCITOL [Concomitant]
     Active Substance: ELDECALCITOL
     Dosage: AFTER BREAKFAST
  100. ELDECALCITOL [Concomitant]
     Active Substance: ELDECALCITOL
     Dosage: AFTER BREAKFAST
  101. ELDECALCITOL [Concomitant]
     Active Substance: ELDECALCITOL
     Dosage: AFTER BREAKFAST
  102. ELDECALCITOL [Concomitant]
     Active Substance: ELDECALCITOL
     Dosage: AFTER BREAKFAST
  103. ELDECALCITOL [Concomitant]
     Active Substance: ELDECALCITOL
     Dosage: AFTER BREAKFAST
  104. ELDECALCITOL [Concomitant]
     Active Substance: ELDECALCITOL
     Dosage: AFTER BREAKFAST
  105. ELDECALCITOL [Concomitant]
     Active Substance: ELDECALCITOL
     Dosage: AFTER BREAKFAST
  106. ELDECALCITOL [Concomitant]
     Active Substance: ELDECALCITOL
     Dosage: AFTER BREAKFAST
  107. ELDECALCITOL [Concomitant]
     Active Substance: ELDECALCITOL
     Dosage: AFTER BREAKFAST
  108. ELDECALCITOL [Concomitant]
     Active Substance: ELDECALCITOL
     Dosage: AFTER BREAKFAST
  109. METHYLCOBALAMIN [Concomitant]
     Active Substance: METHYLCOBALAMIN
     Dosage: AFTER BREAKFAST AND DINNER
  110. METHYLCOBALAMIN [Concomitant]
     Active Substance: METHYLCOBALAMIN
     Dosage: AFTER BREAKFAST AND DINNER
  111. METHYLCOBALAMIN [Concomitant]
     Active Substance: METHYLCOBALAMIN
     Dosage: AFTER BREAKFAST AND DINNER
  112. METHYLCOBALAMIN [Concomitant]
     Active Substance: METHYLCOBALAMIN
     Dosage: AFTER BREAKFAST AND DINNER
  113. METHYLCOBALAMIN [Concomitant]
     Active Substance: METHYLCOBALAMIN
     Dosage: AFTER BREAKFAST AND DINNER
  114. METHYLCOBALAMIN [Concomitant]
     Active Substance: METHYLCOBALAMIN
     Dosage: AFTER BREAKFAST AND DINNER
  115. METHYLCOBALAMIN [Concomitant]
     Active Substance: METHYLCOBALAMIN
     Dosage: AFTER BREAKFAST AND DINNER
  116. METHYLCOBALAMIN [Concomitant]
     Active Substance: METHYLCOBALAMIN
     Dosage: AFTER BREAKFAST AND DINNER
  117. METHYLCOBALAMIN [Concomitant]
     Active Substance: METHYLCOBALAMIN
     Dosage: AFTER BREAKFAST AND DINNER
  118. METHYLCOBALAMIN [Concomitant]
     Active Substance: METHYLCOBALAMIN
     Dosage: AFTER BREAKFAST AND DINNER
  119. METHYLCOBALAMIN [Concomitant]
     Active Substance: METHYLCOBALAMIN
     Dosage: AFTER BREAKFAST AND DINNER
  120. METHYLCOBALAMIN [Concomitant]
     Active Substance: METHYLCOBALAMIN
     Dosage: AFTER BREAKFAST AND DINNER
  121. ASTOMIN [Concomitant]
     Dosage: AFTER EACH MEAL, BEFORE BEDTIME
  122. ASTOMIN [Concomitant]
     Dosage: AFTER EACH MEAL, BEFORE BEDTIME
  123. ASTOMIN [Concomitant]
     Dosage: AFTER EACH MEAL, BEFORE BEDTIME
  124. ASTOMIN [Concomitant]
     Dosage: AFTER EACH MEAL, BEFORE BEDTIME
  125. ASTOMIN [Concomitant]
     Dosage: AFTER EACH MEAL, BEFORE BEDTIME
  126. ASTOMIN [Concomitant]
     Dosage: AFTER EACH MEAL, BEFORE BEDTIME
  127. ASTOMIN [Concomitant]
     Dosage: AFTER EACH MEAL, BEFORE BEDTIME
  128. ASTOMIN [Concomitant]
     Dosage: AFTER EACH MEAL, BEFORE BEDTIME
  129. ASTOMIN [Concomitant]
     Dosage: AFTER EACH MEAL, BEFORE BEDTIME
  130. ASTOMIN [Concomitant]
     Dosage: AFTER EACH MEAL, BEFORE BEDTIME
  131. ASTOMIN [Concomitant]
     Dosage: AFTER EACH MEAL, BEFORE BEDTIME
  132. ASTOMIN [Concomitant]
     Dosage: AFTER EACH MEAL, BEFORE BEDTIME
  133. QVAR [Concomitant]
     Active Substance: BECLOMETHASONE DIPROPIONATE
     Dosage: DOSE UNKNOWN
  134. QVAR [Concomitant]
     Active Substance: BECLOMETHASONE DIPROPIONATE
     Dosage: DOSE UNKNOWN
  135. QVAR [Concomitant]
     Active Substance: BECLOMETHASONE DIPROPIONATE
     Dosage: DOSE UNKNOWN
     Route: 065
  136. QVAR [Concomitant]
     Active Substance: BECLOMETHASONE DIPROPIONATE
     Dosage: DOSE UNKNOWN
  137. QVAR [Concomitant]
     Active Substance: BECLOMETHASONE DIPROPIONATE
     Dosage: DOSE UNKNOWN
     Route: 065
  138. QVAR [Concomitant]
     Active Substance: BECLOMETHASONE DIPROPIONATE
     Dosage: DOSE UNKNOWN
  139. DAPAGLIFLOZIN [Concomitant]
     Active Substance: DAPAGLIFLOZIN
     Dosage: AFTER BREAKFAST
  140. DAPAGLIFLOZIN [Concomitant]
     Active Substance: DAPAGLIFLOZIN
     Dosage: AFTER BREAKFAST
  141. DAPAGLIFLOZIN [Concomitant]
     Active Substance: DAPAGLIFLOZIN
     Dosage: AFTER BREAKFAST
  142. DAPAGLIFLOZIN [Concomitant]
     Active Substance: DAPAGLIFLOZIN
     Dosage: AFTER BREAKFAST
  143. DAPAGLIFLOZIN [Concomitant]
     Active Substance: DAPAGLIFLOZIN
     Dosage: AFTER BREAKFAST
  144. DAPAGLIFLOZIN [Concomitant]
     Active Substance: DAPAGLIFLOZIN
     Dosage: AFTER BREAKFAST
  145. DAPAGLIFLOZIN [Concomitant]
     Active Substance: DAPAGLIFLOZIN
     Dosage: AFTER BREAKFAST
  146. DAPAGLIFLOZIN [Concomitant]
     Active Substance: DAPAGLIFLOZIN
     Dosage: AFTER BREAKFAST

REACTIONS (7)
  - International normalised ratio increased [Recovered/Resolved]
  - Prosthetic cardiac valve stenosis [Unknown]
  - Pneumonia bacterial [Recovering/Resolving]
  - Dehydration [Unknown]
  - Diarrhoea [Recovered/Resolved]
  - Vomiting [Recovered/Resolved]
  - Decreased appetite [Recovered/Resolved]
